FAERS Safety Report 9706479 (Version 1)
Quarter: 2013Q4

REPORT INFORMATION
  Report Type: Report from Study
  Country: CN (occurrence: CN)
  Receive Date: 20131125
  Receipt Date: 20131125
  Transmission Date: 20140711
  Serious: Yes (Other)
  Sender: FDA-Public Use
  Company Number: CN-ROCHE-1308514

PATIENT
  Sex: 0

DRUGS (3)
  1. MYCOPHENOLATE MOFETIL [Suspect]
     Indication: PROPHYLAXIS AGAINST TRANSPLANT REJECTION
     Dosage: 0.75-1 G TWO TIMES A DAY
     Route: 065
  2. TACROLIMUS [Suspect]
     Indication: PROPHYLAXIS AGAINST TRANSPLANT REJECTION
     Dosage: TWO ORAL OR INTRAVENOUS DRIPS OF STANDARD DOSE TWICE PER DAY
     Route: 065
  3. TACROLIMUS [Suspect]
     Dosage: TWO ORAL OR INTRAVENOUS DRIPS OF INITIAL DOSE TWICE PER DAY
     Route: 065

REACTIONS (2)
  - Cytomegalovirus infection [Unknown]
  - Kidney transplant rejection [Unknown]
